FAERS Safety Report 9131803 (Version 1)
Quarter: 2013Q1

REPORT INFORMATION
  Report Type: Report from Study
  Country: US (occurrence: US)
  Receive Date: 20130301
  Receipt Date: 20130301
  Transmission Date: 20140127
  Serious: Yes (Hospitalization)
  Sender: FDA-Public Use
  Company Number: US-JNJFOC-20130214763

PATIENT
  Age: 12 Year
  Sex: Male
  Weight: 36.8 kg

DRUGS (3)
  1. REMICADE [Suspect]
     Indication: INFLAMMATORY BOWEL DISEASE
     Route: 042
     Dates: start: 20121221
  2. REMICADE [Suspect]
     Indication: INFLAMMATORY BOWEL DISEASE
     Route: 042
     Dates: start: 20111102
  3. ALBUTEROL [Concomitant]

REACTIONS (2)
  - Pneumonia [Recovered/Resolved]
  - Asthma [Recovered/Resolved]
